FAERS Safety Report 4721441-9 (Version None)
Quarter: 2005Q3

REPORT INFORMATION
  Report Type: 
  Country: None (occurrence: None)
  Receive Date: 20050721
  Receipt Date: 20040908
  Transmission Date: 20060218
  Serious: No
  Sender: FDA-Public Use
  Company Number: US-BRISTOL-MYERS SQUIBB COMPANY-12696308

PATIENT
  Age: 77 Year
  Sex: Female
  Weight: 82 kg

DRUGS (2)
  1. COUMADIN [Suspect]
     Indication: ATRIAL FIBRILLATION
     Route: 048
  2. ANTIHYPERTENSIVE [Concomitant]

REACTIONS (1)
  - PROTHROMBIN LEVEL ABNORMAL [None]
